FAERS Safety Report 20895879 (Version 1)
Quarter: 2022Q2

REPORT INFORMATION
  Report Type: Spontaneous
  Country: US (occurrence: US)
  Receive Date: 20220531
  Receipt Date: 20220531
  Transmission Date: 20220721
  Serious: No
  Sender: FDA-Public Use
  Company Number: US-009507513-2205USA007337

PATIENT
  Age: 23 Year
  Sex: Female

DRUGS (3)
  1. INTRON A [Suspect]
     Active Substance: INTERFERON ALFA-2B
     Indication: Hepatocellular carcinoma
     Dosage: 180 MICROGRAM PER SQ METER, ON DAY 1
     Route: 058
  2. FLUOROURACIL [Suspect]
     Active Substance: FLUOROURACIL
     Indication: Hepatocellular carcinoma
     Dosage: 1400 MILLIGRAM/SQUARE METER, INTRAVENOUSLY (IV) ON DAY 1, CYCLICAL
     Route: 042
  3. NIVOLUMAB [Suspect]
     Active Substance: NIVOLUMAB
     Indication: Hepatocellular carcinoma
     Dosage: 3 MILLIGRAM/KILOGRAM, ON DAY 1, EVERY 2 WEEKS
     Route: 042

REACTIONS (4)
  - Fatigue [Recovered/Resolved]
  - Nausea [Recovered/Resolved]
  - Throat irritation [Recovered/Resolved]
  - Product use in unapproved indication [Unknown]
